FAERS Safety Report 7222167-2 (Version None)
Quarter: 2011Q1

REPORT INFORMATION
  Report Type: 
  Country: None (occurrence: None)
  Receive Date: 20110112
  Receipt Date: 20101228
  Transmission Date: 20110831
  Serious: Yes (Life-Threatening)
  Sender: FDA-Public Use
  Company Number: JP-GILEAD-E2B_00000995

PATIENT
  Age: 44 Year
  Sex: Female

DRUGS (17)
  1. FUROSEMIDE [Concomitant]
  2. OMEPRAL [Concomitant]
  3. MUCOSTA [Concomitant]
  4. FLOMAX [Concomitant]
  5. REVATIO [Concomitant]
  6. ULCERLMIN [Concomitant]
  7. RHYTHMY [Concomitant]
  8. MIYA BM [Concomitant]
  9. AMBRISENTAN [Suspect]
     Indication: PULMONARY ARTERIAL HYPERTENSION
     Dosage: 10MG PER DAY
     Route: 048
     Dates: start: 20101126
  10. SPIRIVA [Concomitant]
  11. WARFARIN SODIUM [Concomitant]
  12. DIGOXIN [Concomitant]
  13. SLOW-K [Concomitant]
  14. BOSENTAN [Concomitant]
  15. PROTECADIN [Concomitant]
  16. MAALOX [Concomitant]
  17. LOPEMIN [Concomitant]

REACTIONS (2)
  - DYSPNOEA [None]
  - PULMONARY HYPERTENSIVE CRISIS [None]
